FAERS Safety Report 8169942-8 (Version None)
Quarter: 2012Q1

REPORT INFORMATION
  Report Type: 
  Country: None (occurrence: None)
  Receive Date: 20120228
  Receipt Date: 20120228
  Transmission Date: 20120608
  Serious: Yes (Other)
  Sender: FDA-Public Use
  Company Number: None

PATIENT
  Age: 28 Year
  Sex: Female
  Weight: 61.234 kg

DRUGS (2)
  1. LEXAPRO [Concomitant]
     Route: 048
  2. ALPRAZOLAM [Suspect]
     Indication: ANXIETY
     Dosage: 0.5 MG
     Dates: start: 20120224, end: 20120224

REACTIONS (8)
  - PALPITATIONS [None]
  - TREMOR [None]
  - HEART RATE INCREASED [None]
  - HYPERHIDROSIS [None]
  - ANXIETY [None]
  - PARAESTHESIA [None]
  - PALLOR [None]
  - MALAISE [None]
